FAERS Safety Report 7775519-6 (Version None)
Quarter: 2011Q3

REPORT INFORMATION
  Report Type: 
  Country: None (occurrence: None)
  Receive Date: 20110923
  Receipt Date: 20110921
  Transmission Date: 20111222
  Serious: Yes (Other)
  Sender: FDA-Public Use
  Company Number: IT-ROCHE-803833

PATIENT
  Sex: Female
  Weight: 57 kg

DRUGS (7)
  1. METHOTREXATE [Concomitant]
  2. PROGESTERONE [Concomitant]
  3. ACETAMINOPHEN [Concomitant]
  4. ACTEMRA [Suspect]
     Indication: RHEUMATOID ARTHRITIS
     Dosage: LAST DOSE PRIOR TO SAE: 31 AUGUST 2011, TEMPORARILY INTERRUPTED, FORM: VIAL
     Route: 042
     Dates: start: 20101130
  5. FOLIC ACID [Concomitant]
  6. IBUPROFEN [Concomitant]
  7. IRBESARTAN [Concomitant]

REACTIONS (1)
  - LYMPHADENECTOMY [None]
